FAERS Safety Report 8288662-2 (Version None)
Quarter: 2012Q2

REPORT INFORMATION
  Report Type: 
  Country: None (occurrence: None)
  Receive Date: 20120417
  Receipt Date: 20120403
  Transmission Date: 20120825
  Serious: Yes (Hospitalization)
  Sender: FDA-Public Use
  Company Number: JP-PAR PHARMACEUTICAL, INC-2012SCPR004310

PATIENT

DRUGS (8)
  1. DEXAMETHASONE [Suspect]
     Dosage: 8 MG, UNKNOWN
     Route: 065
  2. DEXAMETHASONE [Suspect]
     Dosage: 12 MG, UNKNOWN
     Route: 065
  3. DEXAMETHASONE [Suspect]
     Dosage: 12 MG, UNKNOWN
     Route: 065
  4. MEROPENEM [Concomitant]
     Indication: MENINGITIS BACTERIAL
     Dosage: 2 G, THREE TIMES DAILY
     Route: 065
  5. CEFTRIAXONE [Concomitant]
     Indication: MENINGITIS BACTERIAL
     Dosage: 2 G,  TWICE DAILY
     Route: 065
  6. DEXAMETHASONE [Suspect]
     Dosage: 8 MG, UNKNOWN
     Route: 065
  7. DEXAMETHASONE [Suspect]
     Indication: MENINGITIS BACTERIAL
     Dosage: 4 MG, FOUR TIMES DAILY
     Route: 065
  8. DEXAMETHASONE [Suspect]
     Dosage: 12 MG, UNKNOWN
     Route: 065

REACTIONS (6)
  - PNEUMOCOCCAL INFECTION [None]
  - ISCHAEMIC STROKE [None]
  - CNS VENTRICULITIS [None]
  - VASCULITIS CEREBRAL [None]
  - CEREBRAL INFARCTION [None]
  - CEREBROVASCULAR SPASM [None]
